FAERS Safety Report 11487302 (Version 2)
Quarter: 2015Q3

REPORT INFORMATION
  Report Type: Spontaneous
  Country: US (occurrence: US)
  Receive Date: 20150910
  Receipt Date: 20150921
  Transmission Date: 20151125
  Serious: No
  Sender: FDA-Public Use
  Company Number: US-TEVA-592408ACC

PATIENT
  Age: 46 Year
  Sex: Female
  Weight: 67.65 kg

DRUGS (1)
  1. PARAGARD T 380A [Suspect]
     Active Substance: COPPER
     Indication: CONTRACEPTION
     Route: 015
     Dates: start: 20150309, end: 20150821

REACTIONS (3)
  - Menorrhagia [Unknown]
  - Pelvic pain [Recovered/Resolved]
  - Vaginal discharge [Recovered/Resolved]

NARRATIVE: CASE EVENT DATE: 201504
